FAERS Safety Report 4842708-X (Version None)
Quarter: 2005Q4

REPORT INFORMATION
  Report Type: 
  Country: None (occurrence: None)
  Receive Date: 20051201
  Receipt Date: 20051117
  Transmission Date: 20060501
  Serious: Yes (Hospitalization)
  Sender: FDA-Public Use
  Company Number: JP-MERCK-0511USA04125

PATIENT
  Age: 76 Year

DRUGS (5)
  1. PEPCID [Suspect]
     Indication: GASTRITIS
     Route: 048
  2. HARNAL [Suspect]
     Indication: DRUG USE FOR UNKNOWN INDICATION
     Route: 048
     Dates: start: 20050324
  3. MAGNESIUM OXIDE [Concomitant]
     Indication: CONSTIPATION
     Route: 048
     Dates: start: 20050324, end: 20050829
  4. CONIEL [Concomitant]
     Indication: HYPERTENSION
     Route: 048
  5. FASTIC [Concomitant]
     Route: 048

REACTIONS (1)
  - CEREBRAL HAEMORRHAGE [None]
